FAERS Safety Report 21052555 (Version 2)
Quarter: 2022Q3

REPORT INFORMATION
  Report Type: Spontaneous
  Country: US (occurrence: US)
  Receive Date: 20220707
  Receipt Date: 20220818
  Transmission Date: 20221027
  Serious: No
  Sender: FDA-Public Use
  Company Number: US-AMGEN-USASP2022113276

PATIENT
  Age: 81 Year
  Sex: Female

DRUGS (6)
  1. REPATHA [Suspect]
     Active Substance: EVOLOCUMAB
     Indication: Blood cholesterol abnormal
     Dosage: 420 MILLIGRAM PER 3.5, QMO
     Route: 065
  2. TRULICITY [Concomitant]
     Active Substance: DULAGLUTIDE
  3. JARDIANCE [Concomitant]
     Active Substance: EMPAGLIFLOZIN
  4. ASPIRIN [Concomitant]
     Active Substance: ASPIRIN
     Dosage: UNK UNK, QD
  5. METOPROLOL [Concomitant]
     Active Substance: METOPROLOL
  6. EZETIMIBE [Concomitant]
     Active Substance: EZETIMIBE

REACTIONS (2)
  - Device difficult to use [Unknown]
  - Drug dose omission by device [Unknown]

NARRATIVE: CASE EVENT DATE: 20220630
